FAERS Safety Report 20947815 (Version 1)
Quarter: 2022Q2

REPORT INFORMATION
  Report Type: Spontaneous
  Country: US (occurrence: US)
  Receive Date: 20220611
  Receipt Date: 20220611
  Transmission Date: 20220720
  Serious: No
  Sender: FDA-Public Use
  Company Number: US-TEVA-2022-US-2038105

PATIENT
  Age: 78 Year
  Sex: Female

DRUGS (2)
  1. CARTIA XT [Suspect]
     Active Substance: DILTIAZEM HYDROCHLORIDE
     Indication: Hypertension
     Dosage: 120 MILLIGRAM DAILY;
     Route: 065
  2. CARTIA XT [Suspect]
     Active Substance: DILTIAZEM HYDROCHLORIDE
     Dosage: 240 MILLIGRAM DAILY;
     Route: 065

REACTIONS (4)
  - Drug ineffective [Unknown]
  - Dizziness [Unknown]
  - Hyperchlorhydria [Unknown]
  - Abdominal discomfort [Unknown]
